FAERS Safety Report 8537076-6 (Version None)
Quarter: 2012Q3

REPORT INFORMATION
  Report Type: 
  Country: None (occurrence: None)
  Receive Date: 20120725
  Receipt Date: 20120717
  Transmission Date: 20120928
  Serious: Yes (Other)
  Sender: FDA-Public Use
  Company Number: AU-B.I. PHARMACEUTICALS,INC./RIDGEFIELD-2012-BP-16401YA

PATIENT
  Sex: Male

DRUGS (7)
  1. ZOPICLONE (ZOPICLONE) [Concomitant]
  2. CALTRATE (CALCIUM CARBONATE, COLECALCIFEROL) [Concomitant]
  3. VENLAFAXINE HCL [Concomitant]
  4. ESOMEPRAZOLE MAGNESIUM [Concomitant]
  5. TAMSULOSIN HCL [Suspect]
     Dosage: 400 MG
     Route: 065
     Dates: start: 20120712
  6. LEVOTHYROXINE SODIUM [Concomitant]
  7. FOLIC ACID [Concomitant]

REACTIONS (2)
  - ORTHOSTATIC HYPOTENSION [None]
  - CONFUSIONAL STATE [None]
